FAERS Safety Report 15409987 (Version 1)
Quarter: 2018Q3

REPORT INFORMATION
  Report Type: Spontaneous
  Country: US (occurrence: US)
  Receive Date: 20180920
  Receipt Date: 20180920
  Transmission Date: 20181010
  Serious: Yes (Other)
  Sender: FDA-Public Use
  Company Number: US-ROCHE-2185164

PATIENT
  Age: 69 Year
  Sex: Male
  Weight: 112.59 kg

DRUGS (2)
  1. OCREVUS [Suspect]
     Active Substance: OCRELIZUMAB
     Indication: PRIMARY PROGRESSIVE MULTIPLE SCLEROSIS
     Route: 065
     Dates: start: 201801
  2. OCREVUS [Suspect]
     Active Substance: OCRELIZUMAB
     Dosage: 3RD INFUSION
     Route: 065
     Dates: start: 20180801

REACTIONS (8)
  - Fatigue [Recovered/Resolved]
  - Lower respiratory tract congestion [Recovered/Resolved]
  - Ocular hyperaemia [Recovered/Resolved]
  - Middle ear effusion [Not Recovered/Not Resolved]
  - Ear congestion [Not Recovered/Not Resolved]
  - Swelling face [Recovering/Resolving]
  - Deafness [Not Recovered/Not Resolved]
  - Cough [Recovered/Resolved]

NARRATIVE: CASE EVENT DATE: 20180807
